FAERS Safety Report 24920708 (Version 3)
Quarter: 2025Q3

REPORT INFORMATION
  Report Type: Report from Study
  Country: EU (occurrence: EU)
  Receive Date: 20250204
  Receipt Date: 20250918
  Transmission Date: 20251020
  Serious: Yes (Life-Threatening, Hospitalization, Other)
  Sender: AUROBINDO
  Company Number: EU-BAYER-2024A134524

PATIENT
  Age: 59 Year
  Sex: Female

DRUGS (8)
  1. RIVAROXABAN [Interacting]
     Active Substance: RIVAROXABAN
     Indication: Metastatic renal cell carcinoma
     Dosage: 20 MILLIGRAM, ONCE A DAY
     Route: 065
  2. VENLAFAXINE [Interacting]
     Active Substance: VENLAFAXINE HYDROCHLORIDE
     Indication: Metastatic renal cell carcinoma
     Dosage: 75 MILLIGRAM, ONCE A DAY
     Route: 065
  3. ACETAMINOPHEN\ASCORBIC ACID [Interacting]
     Active Substance: ACETAMINOPHEN\ASCORBIC ACID
     Indication: Product used for unknown indication
     Route: 065
  4. CABOZANTINIB [Interacting]
     Active Substance: CABOZANTINIB
     Indication: Product used for unknown indication
     Route: 065
  5. GABAPENTIN [Concomitant]
     Active Substance: GABAPENTIN
     Indication: Metastatic renal cell carcinoma
     Dosage: 100 MILLIGRAM, 3 TIMES A DAY
     Route: 065
  6. PANTOPRAZOLE [Concomitant]
     Active Substance: PANTOPRAZOLE
     Indication: Metastatic renal cell carcinoma
     Dosage: 20 MILLIGRAM, ONCE A DAY
     Route: 065
  7. TINZAPARIN [Concomitant]
     Active Substance: TINZAPARIN
     Indication: Product use in unapproved indication
     Route: 065
  8. TRAMADOL [Concomitant]
     Active Substance: TRAMADOL
     Indication: Metastatic renal cell carcinoma
     Route: 065

REACTIONS (6)
  - Anaemia [Unknown]
  - Melaena [Unknown]
  - Gastrointestinal haemorrhage [Unknown]
  - Rectal haemorrhage [Unknown]
  - Epistaxis [Unknown]
  - Drug interaction [Unknown]
